FAERS Safety Report 11421962 (Version 1)
Quarter: 2015Q3

REPORT INFORMATION
  Report Type: Spontaneous
  Country: DE (occurrence: DE)
  Receive Date: 20150827
  Receipt Date: 20150827
  Transmission Date: 20151125
  Serious: Yes (Other)
  Sender: FDA-Public Use
  Company Number: DE-PFIZER INC-2015188987

PATIENT
  Age: 46 Year
  Sex: Male

DRUGS (4)
  1. BEROTEC [Concomitant]
     Active Substance: FENOTEROL HYDROBROMIDE
     Dosage: 100 MG, AS NEEDED
     Dates: start: 1987
  2. VOLTAREN [Concomitant]
     Active Substance: DICLOFENAC SODIUM
     Dosage: UNK, AS NEEDED
     Dates: start: 2015
  3. RELVAR ELLIPTA [Concomitant]
     Active Substance: FLUTICASONE FUROATE\VILANTEROL TRIFENATATE
     Dosage: 1 DF, 1X/DAY
     Dates: start: 2015
  4. CHAMPIX [Suspect]
     Active Substance: VARENICLINE TARTRATE
     Indication: SMOKING CESSATION THERAPY
     Dosage: 0.5/DAY
     Dates: start: 20150526, end: 20150529

REACTIONS (12)
  - Dyspnoea [Recovered/Resolved]
  - Vision blurred [Recovered/Resolved]
  - Tunnel vision [Recovered/Resolved]
  - Dry mouth [Recovered/Resolved]
  - Tremor [Recovered/Resolved]
  - Hallucination [Recovered/Resolved]
  - Panic attack [Recovered/Resolved]
  - Chest discomfort [Recovered/Resolved]
  - Restlessness [Recovered/Resolved]
  - Claustrophobia [Not Recovered/Not Resolved]
  - Musculoskeletal chest pain [Recovered/Resolved]
  - Tachycardia [Not Recovered/Not Resolved]

NARRATIVE: CASE EVENT DATE: 20150526
